FAERS Safety Report 18257391 (Version 4)
Quarter: 2020Q4

REPORT INFORMATION
  Report Type: Spontaneous
  Country: US (occurrence: US)
  Receive Date: 20200911
  Receipt Date: 20201012
  Transmission Date: 20210113
  Serious: Yes (Death)
  Sender: FDA-Public Use
  Company Number: US-JNJFOC-20200909543

PATIENT
  Age: 15 Year
  Sex: Female

DRUGS (1)
  1. BENADRYL [Suspect]
     Active Substance: DIPHENHYDRAMINE HYDROCHLORIDE
     Indication: HALLUCINATION
     Dosage: TAKING A DOZEN OR MORE DOSES OF THE PILL /AUG/2020
     Route: 065

REACTIONS (2)
  - Intentional product misuse [Fatal]
  - Overdose [Fatal]

NARRATIVE: CASE EVENT DATE: 202008
